FAERS Safety Report 4796771-5 (Version None)
Quarter: 2005Q4

REPORT INFORMATION
  Report Type: 
  Country: None (occurrence: None)
  Receive Date: 20051007
  Receipt Date: 20050922
  Transmission Date: 20060501
  Serious: Yes (Other)
  Sender: FDA-Public Use
  Company Number: 2005-0008735

PATIENT
  Age: 61 Year
  Sex: Male

DRUGS (9)
  1. HEPSERA [Suspect]
     Dosage: 10 MG, 1 IN 1 D
     Dates: start: 20040301, end: 20050101
  2. HEPSERA [Suspect]
     Dosage: 10 MG, 1 IN 1 D
     Dates: start: 20050101
  3. MEDROL [Concomitant]
  4. SANDIMMUNE [Concomitant]
  5. CELLCEPT [Concomitant]
  6. CALCIUM CARBONATE (CALCIUM CARBONATE) [Concomitant]
  7. ALFA LEO (ALFACALCIDOL) [Concomitant]
  8. COZAAR [Concomitant]
  9. AMLODIPINE BESYLATE [Concomitant]

REACTIONS (6)
  - DRUG TOXICITY [None]
  - NEPHROPATHY TOXIC [None]
  - PROTEINURIA [None]
  - RENAL DISORDER [None]
  - RENAL IMPAIRMENT [None]
  - RENAL TUBULAR ATROPHY [None]
